FAERS Safety Report 4531486-X (Version None)
Quarter: 2004Q4

REPORT INFORMATION
  Report Type: 
  Country: None (occurrence: None)
  Receive Date: 20041216
  Receipt Date: 20041130
  Transmission Date: 20050328
  Serious: Yes (Death, Hospitalization)
  Sender: FDA-Public Use
  Company Number: 2004-DE-06018GD

PATIENT
  Age: 13 Year
  Sex: Male

DRUGS (9)
  1. INTERFERON GAMMA [Suspect]
     Indication: CHRONIC GRANULOMATOUS DISEASE
     Dosage: THRICE WEEKLY
  2. PREDNISONE [Suspect]
     Indication: GRAFT VERSUS HOST DISEASE
  3. BACTRIM [Suspect]
     Indication: CHRONIC GRANULOMATOUS DISEASE
  4. CYCLOSPORINE [Suspect]
     Indication: PROPHYLAXIS AGAINST TRANSPLANT REJECTION
  5. MYCOPHENOLATE MOFETIL [Suspect]
     Indication: PROPHYLAXIS AGAINST TRANSPLANT REJECTION
  6. ACYCLOVIR [Concomitant]
  7. ITRACONAZOLE [Concomitant]
  8. VANCOMYCIN [Concomitant]
  9. CMV-IMMUNE GLOBULIN (IMMUNOGLOBULIN CYTOMEGALOVIRUS) [Concomitant]

REACTIONS (23)
  - BRAIN DEATH [None]
  - CHILLS [None]
  - CONJUNCTIVITIS [None]
  - CSF WHITE BLOOD CELL COUNT POSITIVE [None]
  - DEMYELINATION [None]
  - DRUG INEFFECTIVE [None]
  - ENCEPHALITIS [None]
  - EYE PAIN [None]
  - FEBRILE NEUTROPENIA [None]
  - GRAFT VERSUS HOST DISEASE [None]
  - HEADACHE [None]
  - INFECTION [None]
  - LIVER ABSCESS [None]
  - MEASLES [None]
  - POST PROCEDURAL COMPLICATION [None]
  - PYREXIA [None]
  - RASH ERYTHEMATOUS [None]
  - RASH PRURITIC [None]
  - SIMPLE PARTIAL SEIZURES [None]
  - STAPHYLOCOCCAL ABSCESS [None]
  - STATUS EPILEPTICUS [None]
  - STEM CELL TRANSPLANT [None]
  - TREATMENT NONCOMPLIANCE [None]
